FAERS Safety Report 6648018-2 (Version None)
Quarter: 2010Q1

REPORT INFORMATION
  Report Type: 
  Country: None (occurrence: None)
  Receive Date: 20100324
  Receipt Date: 20100316
  Transmission Date: 20100710
  Serious: Yes (Hospitalization, Other)
  Sender: FDA-Public Use
  Company Number: AU-ELI_LILLY_AND_COMPANY-AU201002004841

PATIENT
  Age: 74 Year
  Sex: Female

DRUGS (11)
  1. HUMALOG MIX 75/25 [Suspect]
     Indication: DIABETES MELLITUS
     Dosage: 12 IU, 2/D
     Route: 065
  2. HUMALOG MIX 75/25 [Suspect]
     Dosage: 10 IU, 2/D
     Route: 065
     Dates: start: 20100101
  3. CRESTOR /01588602/ [Concomitant]
     Dosage: 20 MG, UNK
  4. ACTOS [Concomitant]
     Dosage: 30 MG, UNK
  5. METFORMIN HCL [Concomitant]
     Dosage: 1500 MG, UNK
  6. DIAFORMIN [Concomitant]
     Dosage: 500 MG, UNK
  7. DBL ASPIRIN [Concomitant]
  8. RENITEC [Concomitant]
     Dosage: 20 MG, UNK
  9. ZOLOFT [Concomitant]
     Dosage: 50 MG, UNK
  10. ZANTAC [Concomitant]
     Dosage: 150 MG, UNK
  11. GLYADE [Concomitant]
     Dosage: 80 ML, 2/D
     Dates: end: 20100210

REACTIONS (1)
  - HYPOGLYCAEMIC UNCONSCIOUSNESS [None]
